FAERS Safety Report 8915041 (Version 2)
Quarter: 2013Q1

REPORT INFORMATION
  Report Type: Spontaneous
  Country: BR (occurrence: BR)
  Receive Date: 20121116
  Receipt Date: 20130304
  Transmission Date: 20140127
  Serious: Yes (Other)
  Sender: FDA-Public Use
  Company Number: BR-GLAXOSMITHKLINE-A1001221A

PATIENT
  Age: 32 None
  Sex: Female
  Weight: 55 kg

DRUGS (8)
  1. NARAMIG [Suspect]
     Indication: MIGRAINE
     Dosage: 5MG SEE DOSAGE TEXT
     Route: 065
     Dates: start: 2002
  2. CHLORPROMAZINE HYDROCHLORIDE [Suspect]
     Indication: MIGRAINE
     Dosage: 20DROP PER DAY
     Route: 065
     Dates: start: 2002
  3. DIPYRONE [Suspect]
     Indication: HEADACHE
     Route: 042
     Dates: start: 2002
  4. LAMICTAL [Suspect]
     Indication: BIPOLAR DISORDER
     Dosage: 50MG AT NIGHT
     Route: 065
     Dates: start: 2002
  5. RIVOTRIL [Suspect]
     Indication: PRODUCT USED FOR UNKNOWN INDICATION
     Dosage: 1MG SEE DOSAGE TEXT
     Route: 060
     Dates: start: 2002
  6. TOPIRAMATE [Suspect]
     Indication: PRODUCT USED FOR UNKNOWN INDICATION
     Dosage: 50MG PER DAY
     Route: 065
  7. MAXALT [Suspect]
     Indication: MIGRAINE
     Dosage: 1TAB SEE DOSAGE TEXT
     Route: 065
     Dates: start: 2002
  8. PROGESTERONE [Suspect]
     Indication: PRODUCT USED FOR UNKNOWN INDICATION
     Route: 067

REACTIONS (5)
  - Stillbirth [Unknown]
  - Vaginal haemorrhage [Recovered/Resolved]
  - Pain [Recovered/Resolved]
  - Drug ineffective [Recovered/Resolved]
  - Exposure during pregnancy [Unknown]
